FAERS Safety Report 6181856-1 (Version None)
Quarter: 2009Q2

REPORT INFORMATION
  Report Type: 
  Country: None (occurrence: None)
  Receive Date: 20090504
  Receipt Date: 20090417
  Transmission Date: 20091009
  Serious: Yes (Hospitalization)
  Sender: FDA-Public Use
  Company Number: 000689

PATIENT
  Age: 80 Year
  Sex: Male

DRUGS (8)
  1. NITROGLYCERIN [Suspect]
     Dates: start: 20080801
  2. OMEPRAZOLE [Suspect]
     Dosage: 20 MG, 20 MG DAILY
     Dates: start: 20080801
  3. AMLODIPINE BESYLATE [Suspect]
     Dosage: 10 MG, 10 MG DAILY
     Dates: start: 20080801, end: 20090131
  4. SIMVASTATIN [Suspect]
     Dates: start: 20080801, end: 20090131
  5. CARVEDILOL [Suspect]
     Dosage: 6.25 MG DAILY ORAL
     Route: 048
     Dates: start: 20080801
  6. DIGOXIN [Suspect]
     Dosage: 12 MG, 12MG DAILY
     Dates: start: 20080801
  7. ASPIRIN [Suspect]
     Dosage: ORAL
     Route: 048
     Dates: start: 20080801
  8. EPLERENONE [Suspect]
     Dosage: 25 MG, 25 MG DAILY ORAL
     Route: 048
     Dates: start: 20080801

REACTIONS (1)
  - DIABETES MELLITUS [None]
